FAERS Safety Report 10351382 (Version 3)
Quarter: 2014Q3

REPORT INFORMATION
  Report Type: Report from Study
  Country: US (occurrence: US)
  Receive Date: 20140730
  Receipt Date: 20140922
  Transmission Date: 20150326
  Serious: Yes (Other)
  Sender: FDA-Public Use
  Company Number: US-SA-2014SA099132

PATIENT
  Age: 48 Year
  Sex: Female

DRUGS (1)
  1. AUBAGIO [Suspect]
     Active Substance: TERIFLUNOMIDE
     Indication: MULTIPLE SCLEROSIS
     Route: 048
     Dates: start: 20140627

REACTIONS (12)
  - Gait disturbance [Unknown]
  - Sensory loss [Unknown]
  - Alanine aminotransferase increased [Unknown]
  - Walking aid user [Unknown]
  - Fatigue [Unknown]
  - Confusional state [Unknown]
  - Dizziness [Unknown]
  - Aspartate aminotransferase increased [Unknown]
  - Memory impairment [Unknown]
  - Hemiparesis [Unknown]
  - Hypokinesia [Unknown]
  - Inflammation [Unknown]

NARRATIVE: CASE EVENT DATE: 201408
